FAERS Safety Report 14298559 (Version 2)
Quarter: 2018Q1

REPORT INFORMATION
  Report Type: Spontaneous
  Country: US (occurrence: US)
  Receive Date: 20171218
  Receipt Date: 20180112
  Transmission Date: 20180509
  Serious: No
  Sender: FDA-Public Use
  Company Number: US-ACTELION-A-US2016-135437

PATIENT
  Age: 49 Year
  Sex: Female

DRUGS (6)
  1. OPSUMIT [Suspect]
     Active Substance: MACITENTAN
     Indication: PULMONARY ARTERIAL HYPERTENSION
     Dosage: 10 MG, QD
     Route: 048
     Dates: start: 20141014
  2. ADCIRCA [Concomitant]
     Active Substance: TADALAFIL
  3. BENADRYL [Concomitant]
     Active Substance: DIPHENHYDRAMINE HYDROCHLORIDE
  4. TYLENOL [Concomitant]
     Active Substance: ACETAMINOPHEN
  5. DELSYM [Concomitant]
     Active Substance: DEXTROMETHORPHAN
  6. MOTRIN [Concomitant]
     Active Substance: IBUPROFEN

REACTIONS (13)
  - Influenza [Unknown]
  - Nasopharyngitis [Unknown]
  - Pain [Unknown]
  - Oropharyngeal pain [Unknown]
  - Ear pain [Unknown]
  - Drug dose omission [Unknown]
  - Pyrexia [Unknown]
  - Fatigue [Unknown]
  - Headache [Unknown]
  - Sinusitis [Unknown]
  - Lung infection [Unknown]
  - Cough [Unknown]
  - Ear infection [Unknown]

NARRATIVE: CASE EVENT DATE: 20160420
